FAERS Safety Report 7499817-9 (Version None)
Quarter: 2011Q2

REPORT INFORMATION
  Report Type: 
  Country: None (occurrence: None)
  Receive Date: 20110524
  Receipt Date: 20110518
  Transmission Date: 20111010
  Serious: Yes (Other)
  Sender: FDA-Public Use
  Company Number: TW-ROCHE-778219

PATIENT
  Age: 51 Year
  Sex: Male

DRUGS (3)
  1. INSULIN [Concomitant]
     Indication: DIABETES MELLITUS
  2. PEGASYS [Suspect]
     Indication: HEPATITIS C
     Route: 058
     Dates: start: 20101105, end: 20110422
  3. RIBAVIRIN [Suspect]
     Indication: HEPATITIS C
     Route: 048
     Dates: start: 20101105, end: 20110422

REACTIONS (1)
  - OSMOTIC DEMYELINATION SYNDROME [None]
